FAERS Safety Report 13495157 (Version 1)
Quarter: 2017Q2

REPORT INFORMATION
  Report Type: Spontaneous
  Country: US (occurrence: US)
  Receive Date: 20170428
  Receipt Date: 20170428
  Transmission Date: 20170830
  Serious: No
  Sender: FDA-Public Use
  Company Number: US-AMGEN-USASP2017061787

PATIENT
  Age: 37 Year
  Sex: Female

DRUGS (4)
  1. PLAQUENIL [Concomitant]
     Active Substance: HYDROXYCHLOROQUINE SULFATE
  2. FOLIC ACID. [Concomitant]
     Active Substance: FOLIC ACID
  3. ENBREL [Suspect]
     Active Substance: ETANERCEPT
     Indication: RHEUMATOID ARTHRITIS
     Dosage: 50 MG, QWK
     Route: 065
     Dates: start: 20170407
  4. MODINE [Concomitant]

REACTIONS (6)
  - Diarrhoea [Not Recovered/Not Resolved]
  - Injection site pain [Recovered/Resolved]
  - Nausea [Not Recovered/Not Resolved]
  - Wrong technique in product usage process [Unknown]
  - Body temperature increased [Not Recovered/Not Resolved]
  - Feeling abnormal [Not Recovered/Not Resolved]

NARRATIVE: CASE EVENT DATE: 20170407
